FAERS Safety Report 10729390 (Version 1)
Quarter: 2015Q1

REPORT INFORMATION
  Report Type: Spontaneous
  Country: GB (occurrence: GB)
  Receive Date: 20150122
  Receipt Date: 20150122
  Transmission Date: 20150721
  Serious: Yes (Other)
  Sender: FDA-Public Use
  Company Number: PHHY2015GB005120

PATIENT
  Age: 64 Year
  Sex: Female

DRUGS (3)
  1. PAROXETINE [Suspect]
     Active Substance: PAROXETINE\PAROXETINE HYDROCHLORIDE
     Indication: DEPRESSION
     Route: 065
  2. CITALOPRAM [Suspect]
     Active Substance: CITALOPRAM HYDROBROMIDE
     Indication: PRODUCT USED FOR UNKNOWN INDICATION
     Dosage: 10 MG (TOOK ONE IN THE EVENING)
     Route: 065
  3. AMITRIPTYLINE [Suspect]
     Active Substance: AMITRIPTYLINE
     Indication: VULVOVAGINAL PAIN
     Route: 065

REACTIONS (9)
  - Fall [Unknown]
  - Decreased appetite [Unknown]
  - Movement disorder [Unknown]
  - Dizziness [Unknown]
  - Chest pain [Unknown]
  - Loss of consciousness [Unknown]
  - Vomiting [Unknown]
  - Exophthalmos [Unknown]
  - Myalgia [Unknown]
